FAERS Safety Report 24812524 (Version 1)
Quarter: 2025Q1

REPORT INFORMATION
  Report Type: Report from Study
  Country: US (occurrence: US)
  Receive Date: 20250106
  Receipt Date: 20250106
  Transmission Date: 20250408
  Serious: Yes (Hospitalization)
  Sender: ABBVIE
  Company Number: US-ABBVIE-6070983

PATIENT
  Age: 85 Year
  Sex: Female

DRUGS (1)
  1. RINVOQ [Suspect]
     Active Substance: UPADACITINIB
     Indication: Rheumatoid arthritis
     Route: 048
     Dates: start: 20240418

REACTIONS (4)
  - Urinary tract infection [Unknown]
  - Illness [Unknown]
  - Endometrial thickening [Unknown]
  - Haematochezia [Unknown]

NARRATIVE: CASE EVENT DATE: 20240101
